FAERS Safety Report 6426016-1 (Version None)
Quarter: 2009Q4

REPORT INFORMATION
  Report Type: 
  Country: None (occurrence: None)
  Receive Date: 20091104
  Receipt Date: 20091026
  Transmission Date: 20100525
  Serious: Yes (Other)
  Sender: FDA-Public Use
  Company Number: DE-RANBAXY-2009RR-28845

PATIENT
  Age: 79 Year
  Sex: Female
  Weight: 79 kg

DRUGS (3)
  1. AMOXICILLIN [Suspect]
     Indication: HELICOBACTER INFECTION
     Dosage: 2000 MG, UNK
     Route: 048
     Dates: start: 20090701
  2. CLARITHROMYCIN [Suspect]
     Indication: HELICOBACTER INFECTION
     Dosage: 1000 MG, UNK
     Route: 048
     Dates: start: 20090701
  3. PANTOPRAZOL [Concomitant]
     Indication: HELICOBACTER GASTRITIS
     Dosage: 40 MG, UNK
     Route: 048
     Dates: start: 20090701

REACTIONS (1)
  - HEPATITIS TOXIC [None]
